FAERS Safety Report 6380258-2 (Version None)
Quarter: 2009Q3

REPORT INFORMATION
  Report Type: 
  Country: None (occurrence: None)
  Receive Date: 20090921
  Receipt Date: 20090907
  Transmission Date: 20100115
  Serious: Yes (Hospitalization)
  Sender: FDA-Public Use
  Company Number: 8035054

PATIENT
  Age: 51 Year
  Sex: Female
  Weight: 54 kg

DRUGS (6)
  1. CDP870 [Suspect]
     Indication: RHEUMATOID ARTHRITIS
     Dosage: 200 MG 1/2W SC
     Route: 058
     Dates: start: 20060203, end: 20060704
  2. CDP870 [Suspect]
     Indication: RHEUMATOID ARTHRITIS
     Dosage: 400 MG 1/2W SC
     Route: 058
     Dates: start: 20060804, end: 20080410
  3. CDP870 [Suspect]
     Indication: RHEUMATOID ARTHRITIS
     Dosage: 200 MG 1/2W SC
     Route: 058
     Dates: start: 20080424, end: 20080715
  4. METHOTREXATE [Concomitant]
  5. DICLOFENAC SODIUM [Concomitant]
  6. OMEPRAZOL /00661201/ [Concomitant]

REACTIONS (5)
  - INTERSTITIAL LUNG DISEASE [None]
  - LYMPHADENITIS [None]
  - PULMONARY TUBERCULOSIS [None]
  - TUBERCULOSIS [None]
  - TUBERCULOUS PLEURISY [None]
